FAERS Safety Report 8263561-0 (Version None)
Quarter: 2012Q2

REPORT INFORMATION
  Report Type: 
  Country: None (occurrence: None)
  Receive Date: 20120405
  Receipt Date: 20120329
  Transmission Date: 20120825
  Serious: Yes (Other)
  Sender: FDA-Public Use
  Company Number: US-TEVA-331720USA

PATIENT
  Sex: Female

DRUGS (8)
  1. PILOCARPINE HYDROCHLORIDE [Concomitant]
     Dates: start: 20060101
  2. MULTI-VITAMINS [Concomitant]
     Dates: start: 20110711
  3. HYDROXYCHLOROQUINE SULFATE [Concomitant]
     Dates: start: 20010101
  4. NUVIGIL [Suspect]
     Route: 065
  5. VICODIN [Concomitant]
     Dates: start: 20010101
  6. TOPIRAMATE [Concomitant]
     Dates: start: 20040101, end: 20110626
  7. SERTRALINE HYDROCHLORIDE [Concomitant]
     Dates: start: 20090401, end: 20110626
  8. EXCEDRIN (MIGRAINE) [Concomitant]
     Dates: start: 20100101

REACTIONS (1)
  - SMALL FOR DATES BABY [None]
